FAERS Safety Report 7041249-1 (Version None)
Quarter: 2010Q4

REPORT INFORMATION
  Report Type: 
  Country: None (occurrence: None)
  Receive Date: 20101013
  Receipt Date: 20100929
  Transmission Date: 20110411
  Serious: Yes (Other)
  Sender: FDA-Public Use
  Company Number: PHHY2010JP65045

PATIENT
  Age: 60 Year
  Sex: Male

DRUGS (1)
  1. CARBAMAZEPINE [Suspect]
     Indication: TEMPORAL LOBE EPILEPSY

REACTIONS (8)
  - ABNORMAL BEHAVIOUR [None]
  - AUTOMATISM [None]
  - DEPRESSED MOOD [None]
  - DRUG ERUPTION [None]
  - EPILEPSY [None]
  - HAEMANGIOMA REMOVAL [None]
  - LOSS OF CONSCIOUSNESS [None]
  - MEMORY IMPAIRMENT [None]
